FAERS Safety Report 24853404 (Version 1)
Quarter: 2025Q1

REPORT INFORMATION
  Report Type: Spontaneous
  Country: US (occurrence: US)
  Receive Date: 20250117
  Receipt Date: 20250117
  Transmission Date: 20250409
  Serious: Yes (Other)
  Sender: STRIDES
  Company Number: US-STRIDES ARCOLAB LIMITED-2025SP000735

PATIENT
  Age: 32 Year
  Sex: Female

DRUGS (16)
  1. DOXORUBICIN [Suspect]
     Active Substance: DOXORUBICIN
     Indication: Small cell carcinoma
     Route: 065
  2. DOXORUBICIN [Suspect]
     Active Substance: DOXORUBICIN
     Indication: Ovarian cancer
  3. ETOPOSIDE [Suspect]
     Active Substance: ETOPOSIDE
     Indication: Small cell carcinoma
     Route: 065
  4. ETOPOSIDE [Suspect]
     Active Substance: ETOPOSIDE
     Indication: Ovarian cancer
  5. CISPLATIN [Suspect]
     Active Substance: CISPLATIN
     Indication: Ovarian cancer
     Route: 065
  6. CISPLATIN [Suspect]
     Active Substance: CISPLATIN
     Indication: Small cell carcinoma
  7. ATEZOLIZUMAB [Suspect]
     Active Substance: ATEZOLIZUMAB
     Indication: Ovarian cancer
     Route: 065
  8. ATEZOLIZUMAB [Suspect]
     Active Substance: ATEZOLIZUMAB
     Indication: Small cell carcinoma
  9. PACLITAXEL [Suspect]
     Active Substance: PACLITAXEL
     Indication: Ovarian cancer
     Route: 065
  10. PACLITAXEL [Suspect]
     Active Substance: PACLITAXEL
     Indication: Small cell carcinoma
  11. IPILIMUMAB [Suspect]
     Active Substance: IPILIMUMAB
     Indication: Ovarian cancer
     Route: 065
  12. IPILIMUMAB [Suspect]
     Active Substance: IPILIMUMAB
     Indication: Small cell carcinoma
  13. NIVOLUMAB [Suspect]
     Active Substance: NIVOLUMAB
     Indication: Ovarian cancer
     Route: 065
  14. NIVOLUMAB [Suspect]
     Active Substance: NIVOLUMAB
     Indication: Small cell carcinoma
  15. TAZEMETOSTAT [Suspect]
     Active Substance: TAZEMETOSTAT
     Indication: Ovarian cancer
     Route: 065
  16. TAZEMETOSTAT [Suspect]
     Active Substance: TAZEMETOSTAT
     Indication: Small cell carcinoma

REACTIONS (4)
  - Precursor T-lymphoblastic lymphoma/leukaemia [Recovered/Resolved]
  - Malignant neoplasm progression [Recovered/Resolved]
  - Drug ineffective [Unknown]
  - Off label use [Unknown]
